FAERS Safety Report 23188166 (Version 1)
Quarter: 2023Q4

REPORT INFORMATION
  Report Type: Spontaneous
  Country: US (occurrence: US)
  Receive Date: 20231115
  Receipt Date: 20231115
  Transmission Date: 20240110
  Serious: No
  Sender: FDA-Public Use
  Company Number: US-PFIZER INC-PV202300183055

PATIENT
  Age: 80 Year
  Sex: Female

DRUGS (1)
  1. CIBINQO [Suspect]
     Active Substance: ABROCITINIB
     Dosage: 50 MG

REACTIONS (4)
  - Hypertension [Unknown]
  - Hypoacusis [Unknown]
  - Cardiac disorder [Unknown]
  - Visual impairment [Unknown]
